FAERS Safety Report 9415698 (Version 1)
Quarter: 2013Q3

REPORT INFORMATION
  Report Type: Spontaneous
  Country: US (occurrence: US)
  Receive Date: 20130723
  Receipt Date: 20130723
  Transmission Date: 20140515
  Serious: Yes (Other)
  Sender: FDA-Public Use
  Company Number: US-PFIZER INC-2013210785

PATIENT
  Age: 52 Year
  Sex: Female

DRUGS (22)
  1. XELJANZ [Suspect]
     Dosage: 5 MG, TWICE A DAY
     Route: 048
     Dates: start: 20130716
  2. ALLEGRA [Concomitant]
     Dosage: 180 MG, UNK
  3. AYGESTIN [Concomitant]
     Dosage: 5 MG, UNK
  4. CALCIUM CARBONATE [Concomitant]
     Dosage: UNK
  5. CITRACAL + D [Concomitant]
     Dosage: 315 MG, UNK
  6. CRANBERRY [Concomitant]
     Dosage: 425 MG, UNK
  7. ECOTRIN [Concomitant]
     Dosage: 325 MG, UNK
  8. FOLIC ACID [Concomitant]
     Dosage: 20 MG, UNK
  9. IRON [Concomitant]
     Dosage: 18 MG, UNK
  10. MAGNESIUM [Concomitant]
     Dosage: 300 MG, UNK
  11. METHOTREXATE [Concomitant]
     Dosage: 2.5 MG, UNK
  12. NORCO [Concomitant]
     Dosage: 10 MG, UNK
  13. POTASSIUM GLUCONATE [Concomitant]
     Dosage: UNK
  14. PREDNISONE [Concomitant]
     Dosage: 10 MG, UNK
  15. PRO-AIR [Concomitant]
     Dosage: 90 UG, UNK
  16. PROZAC [Concomitant]
     Dosage: 40 MG, UNK
  17. VITAMIN B12 AND FOLIC ACID [Concomitant]
     Dosage: UNK
  18. VITAMIN C [Concomitant]
     Dosage: 1000 MG, UNK
  19. VITAMIN D [Concomitant]
     Dosage: UNK
  20. ALGAL [Concomitant]
  21. PRENATABS [Concomitant]
  22. ZINC SULFATE [Concomitant]

REACTIONS (1)
  - Arthropathy [Unknown]
